FAERS Safety Report 17474450 (Version 1)
Quarter: 2020Q1

REPORT INFORMATION
  Report Type: Report from Study
  Country: US (occurrence: US)
  Receive Date: 20200228
  Receipt Date: 20200228
  Transmission Date: 20200409
  Serious: Yes (Other)
  Sender: FDA-Public Use
  Company Number: US-MYLANLABS-2020M1022113

PATIENT

DRUGS (3)
  1. KETAMINE [Suspect]
     Active Substance: KETAMINE
     Indication: SEDATIVE THERAPY
     Dosage: 0.5 MILLIGRAM/KILOGRAM
     Route: 042
  2. FENTANYL. [Concomitant]
     Active Substance: FENTANYL
     Indication: BLUNTED AFFECT
     Dosage: 50 MICROGRAM
     Route: 042
  3. PROPOFOL. [Suspect]
     Active Substance: PROPOFOL
     Indication: SEDATIVE THERAPY
     Dosage: 0.5 MILLIGRAM/KILOGRAM
     Route: 042

REACTIONS (1)
  - Cardiac arrest [Unknown]
